FAERS Safety Report 5188493-6 (Version None)
Quarter: 2006Q4

REPORT INFORMATION
  Report Type: 
  Country: None (occurrence: None)
  Receive Date: 20061214
  Receipt Date: 20061201
  Transmission Date: 20070319
  Serious: Yes (Hospitalization)
  Sender: FDA-Public Use
  Company Number: 2006149226

PATIENT
  Sex: Female

DRUGS (4)
  1. CHANTIX [Suspect]
  2. ADVAIR DISKUS 100/50 [Concomitant]
  3. SPIRIVA [Concomitant]
  4. ANTIBIOTICS (ANTIBIOTICS) [Concomitant]

REACTIONS (2)
  - HEART RATE DECREASED [None]
  - PNEUMONIA [None]
